FAERS Safety Report 5207837-X (Version None)
Quarter: 2007Q1

REPORT INFORMATION
  Report Type: 
  Country: None (occurrence: None)
  Receive Date: 20070112
  Receipt Date: 20070103
  Transmission Date: 20070707
  Serious: Yes (Death, Other)
  Sender: FDA-Public Use
  Company Number: CH-PFIZER INC-2007001809

PATIENT
  Sex: Male

DRUGS (4)
  1. VFEND [Suspect]
  2. DALACIN [Suspect]
  3. CANCIDAS [Concomitant]
  4. CIPROFLOXACIN HYDROCHLORIDE [Concomitant]

REACTIONS (2)
  - AMMONIA INCREASED [None]
  - MUSCLE SPASMS [None]
